FAERS Safety Report 7347407-0 (Version None)
Quarter: 2011Q1

REPORT INFORMATION
  Report Type: 
  Country: None (occurrence: None)
  Receive Date: 20110311
  Receipt Date: 20110307
  Transmission Date: 20110831
  Serious: Yes (Other)
  Sender: FDA-Public Use
  Company Number: AU-ROCHE-764292

PATIENT
  Sex: Female

DRUGS (9)
  1. ACTEMRA [Suspect]
     Indication: RHEUMATOID ARTHRITIS
     Route: 042
     Dates: start: 20100823
  2. ACTEMRA [Suspect]
     Route: 042
     Dates: start: 20101213
  3. PLAQUENIL [Concomitant]
  4. PREDNISONE TAB [Concomitant]
  5. ACTEMRA [Suspect]
     Route: 042
  6. FOLIC ACID [Concomitant]
  7. METHOTREXATE [Concomitant]
  8. ACTEMRA [Suspect]
     Route: 042
     Dates: start: 20101115
  9. ACTEMRA [Suspect]
     Route: 042
     Dates: start: 20101222

REACTIONS (2)
  - DIARRHOEA [None]
  - HEADACHE [None]
